FAERS Safety Report 23504647 (Version 1)
Quarter: 2024Q1

REPORT INFORMATION
  Report Type: Report from Study
  Country: US (occurrence: US)
  Receive Date: 20240209
  Receipt Date: 20240209
  Transmission Date: 20240409
  Serious: Yes (Hospitalization)
  Sender: FDA-Public Use
  Company Number: US-ABBVIE-5625180

PATIENT
  Age: 84 Year
  Sex: Male

DRUGS (1)
  1. IMBRUVICA [Suspect]
     Active Substance: IBRUTINIB
     Indication: Chronic lymphocytic leukaemia
     Route: 048

REACTIONS (5)
  - Abdominal operation [Unknown]
  - Pain [Not Recovered/Not Resolved]
  - Fall [Unknown]
  - Fatigue [Not Recovered/Not Resolved]
  - Aneurysm [Unknown]

NARRATIVE: CASE EVENT DATE: 20231101
